FAERS Safety Report 7959930-6 (Version None)
Quarter: 2011Q4

REPORT INFORMATION
  Report Type: 
  Country: None (occurrence: None)
  Receive Date: 20111206
  Receipt Date: 20111125
  Transmission Date: 20120403
  Serious: Yes (Other)
  Sender: FDA-Public Use
  Company Number: HK-MERCK-1111USA03528

PATIENT
  Age: 32 Year
  Sex: Female

DRUGS (1)
  1. SINGULAIR [Suspect]
     Route: 048
     Dates: start: 20111121, end: 20111124

REACTIONS (1)
  - SUICIDAL IDEATION [None]
